FAERS Safety Report 14935740 (Version 1)
Quarter: 2018Q2

REPORT INFORMATION
  Report Type: Report from Study
  Country: CA (occurrence: CA)
  Receive Date: 20180524
  Receipt Date: 20180524
  Transmission Date: 20180711
  Serious: Yes (Death, Hospitalization)
  Sender: FDA-Public Use
  Company Number: CA-ACTELION-A-NJ2018-168911

PATIENT
  Age: 59 Year
  Sex: Male
  Weight: 72.56 kg

DRUGS (22)
  1. OPSUMIT [Suspect]
     Active Substance: MACITENTAN
     Indication: PULMONARY ARTERIAL HYPERTENSION
     Dosage: 10 MG, UNK
     Route: 048
  2. TYLENOL [Concomitant]
     Active Substance: ACETAMINOPHEN
  3. SEROQUEL [Concomitant]
     Active Substance: QUETIAPINE FUMARATE
  4. ADALAT [Concomitant]
     Active Substance: NIFEDIPINE
  5. SUCRALFATE. [Concomitant]
     Active Substance: SUCRALFATE
     Route: 048
  6. CYCLOBENZAPRINE. [Concomitant]
     Active Substance: CYCLOBENZAPRINE
  7. OXAZEPAM. [Concomitant]
     Active Substance: OXAZEPAM
  8. PLAVIX [Concomitant]
     Active Substance: CLOPIDOGREL BISULFATE
  9. SYNTHROID [Concomitant]
     Active Substance: LEVOTHYROXINE SODIUM
  10. ADCIRCA [Concomitant]
     Active Substance: TADALAFIL
  11. HYDROMORPHONE [Concomitant]
     Active Substance: HYDROMORPHONE
  12. VITAMIN D [Concomitant]
     Active Substance: CHOLECALCIFEROL
  13. DEXILANT [Concomitant]
     Active Substance: DEXLANSOPRAZOLE
  14. DIOVAN [Concomitant]
     Active Substance: VALSARTAN
  15. NIFEDIPINE. [Concomitant]
     Active Substance: NIFEDIPINE
  16. ATIVAN [Concomitant]
     Active Substance: LORAZEPAM
  17. AZATHIOPRINE. [Concomitant]
     Active Substance: AZATHIOPRINE
  18. CRESTOR [Concomitant]
     Active Substance: ROSUVASTATIN CALCIUM
  19. RANITIDINE. [Concomitant]
     Active Substance: RANITIDINE
  20. MELATONINE [Concomitant]
     Active Substance: MELATONIN
  21. CALCIUM [Concomitant]
     Active Substance: CALCIUM
  22. LIPOSIC [Concomitant]
     Active Substance: CARBOMER

REACTIONS (3)
  - Death [Fatal]
  - Pericardial effusion [Not Recovered/Not Resolved]
  - Dyspnoea [Not Recovered/Not Resolved]

NARRATIVE: CASE EVENT DATE: 20180225
